FAERS Safety Report 8886662 (Version 1)
Quarter: 2012Q4

REPORT INFORMATION
  Report Type: 
  Country: JP (occurrence: JP)
  Receive Date: 20121105
  Receipt Date: 20121105
  Transmission Date: 20130627
  Serious: Yes (Other)
  Sender: FDA-Public Use
  Company Number: JP-B.I. PHARMACEUTICALS,INC./RIDGEFIELD-2012-BP-22554NB

PATIENT
  Age: 81 Year
  Sex: Male

DRUGS (5)
  1. MICARDIS [Suspect]
     Indication: HYPERTENSION
     Dosage: 40 mg
     Route: 048
     Dates: start: 20120128, end: 20120911
  2. JANUVIA [Concomitant]
     Indication: DIABETES MELLITUS
     Dosage: 50 mg
     Route: 048
     Dates: start: 20120410
  3. AMLODIN [Concomitant]
     Indication: HYPERTENSION
     Route: 065
  4. GOSHAJINKIGAN [Concomitant]
     Indication: DIABETES MELLITUS
     Route: 065
     Dates: start: 201104
  5. EPADEL S [Concomitant]
     Indication: HYPERLIPIDAEMIA
     Route: 065
     Dates: start: 20120128

REACTIONS (1)
  - Renal failure chronic [Not Recovered/Not Resolved]
